FAERS Safety Report 8449840-2 (Version None)
Quarter: 2012Q2

REPORT INFORMATION
  Report Type: 
  Country: None (occurrence: None)
  Receive Date: 20120620
  Receipt Date: 20120607
  Transmission Date: 20120825
  Serious: Yes (Hospitalization, Other)
  Sender: FDA-Public Use
  Company Number: SE-ELI_LILLY_AND_COMPANY-SE201205003485

PATIENT
  Sex: Male

DRUGS (2)
  1. STRATTERA [Suspect]
     Dosage: 40 MG, QD
     Dates: start: 20110917, end: 20111008
  2. STRATTERA [Suspect]
     Dosage: 80 MG, QD
     Route: 065
     Dates: start: 20111008, end: 20111115

REACTIONS (8)
  - TREMOR [None]
  - DECREASED APPETITE [None]
  - DIZZINESS [None]
  - FATIGUE [None]
  - MUSCLE SPASMS [None]
  - GRAND MAL CONVULSION [None]
  - WEIGHT DECREASED [None]
  - NAUSEA [None]
